FAERS Safety Report 18460898 (Version 1)
Quarter: 2020Q4

REPORT INFORMATION
  Report Type: Spontaneous
  Country: US (occurrence: US)
  Receive Date: 20201104
  Receipt Date: 20201104
  Transmission Date: 20210114
  Serious: No
  Sender: FDA-Public Use
  Company Number: US-GILEAD-2020-0501612

PATIENT
  Age: 66 Year
  Sex: Male

DRUGS (3)
  1. EPCLUSA [Suspect]
     Active Substance: SOFOSBUVIR\VELPATASVIR
     Indication: CHRONIC HEPATITIS C
     Dosage: 1 DOSAGE FORM, QD
     Route: 048
     Dates: start: 20201005
  2. AMBIEN [Concomitant]
     Active Substance: ZOLPIDEM TARTRATE
  3. FLOMAX [MORNIFLUMATE] [Concomitant]
     Active Substance: MORNIFLUMATE

REACTIONS (2)
  - Headache [Recovering/Resolving]
  - Arthritis [Unknown]

NARRATIVE: CASE EVENT DATE: 202010
